FAERS Safety Report 9877932 (Version 2)
Quarter: 2014Q1

REPORT INFORMATION
  Report Type: Spontaneous
  Country: FR (occurrence: FR)
  Receive Date: 20140206
  Receipt Date: 20140218
  Transmission Date: 20141002
  Serious: Yes (Hospitalization)
  Sender: FDA-Public Use
  Company Number: FR-TEVA-458868ISR

PATIENT
  Age: 36 Year
  Sex: Male

DRUGS (3)
  1. CISPLATINE TEVA 1MG/1ML [Suspect]
     Indication: TESTIS CANCER
     Route: 042
     Dates: start: 20130311, end: 20130407
  2. ETOPOSIDE TEVA 200MG/10ML [Suspect]
     Indication: TESTIS CANCER
     Route: 042
     Dates: start: 20130311, end: 20130407
  3. BLEOMYCINE BELLON 15MG [Suspect]
     Indication: TESTIS CANCER
     Route: 042
     Dates: start: 20130311, end: 20130403

REACTIONS (1)
  - Acute coronary syndrome [Recovering/Resolving]
